FAERS Safety Report 16515578 (Version 1)
Quarter: 2019Q3

REPORT INFORMATION
  Report Type: Other
  Country: BE (occurrence: BE)
  Receive Date: 20190702
  Receipt Date: 20190702
  Transmission Date: 20191004
  Serious: Yes (Disabling)
  Sender: FDA-Public Use
  Company Number: BE-B. BRAUN MEDICAL INC.-2070199

PATIENT
  Age: 45 Year
  Sex: Female

DRUGS (4)
  1. TACROLIMUS. [Concomitant]
     Active Substance: TACROLIMUS
  2. METHYLPREDNISOLONE. [Concomitant]
     Active Substance: METHYLPREDNISOLONE
  3. MYCOPHENOLATE MOFETIL. [Concomitant]
     Active Substance: MYCOPHENOLATE MOFETIL
  4. CEFAZOLIN FOR INJECTION USP AND DEXTROSE INJECTION USP 0264-3103-11 (N [Suspect]
     Active Substance: CEFAZOLIN
     Indication: ANTIBIOTIC PROPHYLAXIS

REACTIONS (2)
  - Cerebral haemorrhage [None]
  - Hypoprothrombinaemia [None]
